FAERS Safety Report 8625976-8 (Version None)
Quarter: 2012Q3

REPORT INFORMATION
  Report Type: 
  Country: None (occurrence: None)
  Receive Date: 20120827
  Receipt Date: 20120817
  Transmission Date: 20120928
  Serious: Yes (Disabling, Other)
  Sender: FDA-Public Use
  Company Number: GB-TEVA-355108ISR

PATIENT
  Age: 85 Year
  Sex: Male
  Weight: 69.8 kg

DRUGS (8)
  1. ZOPICLONE [Suspect]
     Indication: INSOMNIA
     Dosage: 3.75 MILLIGRAM DAILY;
     Route: 048
  2. SENNA [Concomitant]
     Dosage: DOSE: 1-2 NOCTE
  3. LANSOPRAZOLE [Concomitant]
  4. ZOLADEX [Concomitant]
     Indication: PROSTATE CANCER
     Route: 058
     Dates: start: 20010101
  5. ASPIRIN [Concomitant]
  6. QUETIAPINE [Concomitant]
     Dosage: 50 MILLIGRAM DAILY;
  7. FUROSEMIDE [Concomitant]
     Dosage: 40 MILLIGRAM DAILY;
  8. BICALUTAMIDE [Concomitant]

REACTIONS (2)
  - DEMENTIA [None]
  - INAPPROPRIATE SCHEDULE OF DRUG ADMINISTRATION [None]
